FAERS Safety Report 11314046 (Version 1)
Quarter: 2015Q3

REPORT INFORMATION
  Report Type: Spontaneous
  Country: NL (occurrence: NL)
  Receive Date: 20150727
  Receipt Date: 20150727
  Transmission Date: 20151125
  Serious: Yes (Death, Hospitalization)
  Sender: FDA-Public Use
  Company Number: NL-TEVA-580001ISR

PATIENT
  Age: 75 Year
  Sex: Male

DRUGS (9)
  1. LISINOPRIL TABLET 10MG [Concomitant]
     Active Substance: LISINOPRIL
     Dosage: 10 MILLIGRAM DAILY; ONCE DAILY ONE
     Route: 048
  2. METOPROLOL TABLET MGA  50MG (SUCCINAAT) [Concomitant]
     Dosage: 50 MILLIGRAM DAILY; ONCE DAILY ONE
     Route: 048
  3. MOVICOLON POEDER VOOR DRANK IN SACHET [Concomitant]
     Dosage: 2 DOSAGE FORMS DAILY; TWICE DAILY ONE
     Route: 048
  4. AMLODIPINE TABLET   5MG [Concomitant]
     Dosage: 5 MILLIGRAM DAILY; ONCE DAILY ONE
     Route: 048
  5. METOPROLOL TABLET MGA  25MG (SUCCINAAT) [Concomitant]
     Dosage: 25 MILLIGRAM DAILY; ONCE DAILY ONE
     Route: 048
  6. FLUOROURACIL INFUUS [Suspect]
     Active Substance: FLUOROURACIL
     Indication: RECTAL CANCER
     Dosage: DOSAGE NOT KNOWN
     Route: 042
  7. MOLAXOLE POEDER VOOR SUSPENSIE IN SACHET [Concomitant]
     Dosage: 2 DOSAGE FORMS DAILY; TWICE DAILY ONE
     Route: 048
  8. DEXAMETHASON TABLET  4MG [Concomitant]
     Dosage: 6 MILLIGRAM DAILY; ONCE DAILY 1,5
     Route: 048
  9. OXALIPLATINE INFUUS [Suspect]
     Active Substance: OXALIPLATIN
     Indication: RECTAL CANCER
     Dosage: DOSAGE NOT KNOWN
     Route: 042

REACTIONS (1)
  - Guillain-Barre syndrome [Fatal]

NARRATIVE: CASE EVENT DATE: 20150703
